FAERS Safety Report 11280777 (Version 4)
Quarter: 2016Q3

REPORT INFORMATION
  Report Type: Spontaneous
  Country: US (occurrence: US)
  Receive Date: 20150717
  Receipt Date: 20160727
  Transmission Date: 20161109
  Serious: Yes (Hospitalization)
  Sender: FDA-Public Use
  Company Number: US-JNJFOC-20150711136

PATIENT
  Age: 77 Year
  Sex: Male

DRUGS (22)
  1. XARELTO [Suspect]
     Active Substance: RIVAROXABAN
     Indication: DEEP VEIN THROMBOSIS
     Dosage: 15MG/20MG
     Route: 048
     Dates: start: 20131101, end: 20131226
  2. AMITRIPTYLINE HCL [Concomitant]
     Active Substance: AMITRIPTYLINE
     Route: 065
  3. XARELTO [Suspect]
     Active Substance: RIVAROXABAN
     Indication: DEEP VEIN THROMBOSIS
     Route: 048
     Dates: end: 201410
  4. ATORVASTATIN [Concomitant]
     Active Substance: ATORVASTATIN
     Route: 065
  5. FUROSEMIDE. [Concomitant]
     Active Substance: FUROSEMIDE
     Route: 065
  6. TRAMADOL. [Concomitant]
     Active Substance: TRAMADOL
     Route: 065
  7. ANUSOL HC [Concomitant]
     Active Substance: HYDROCORTISONE
     Route: 054
  8. XARELTO [Suspect]
     Active Substance: RIVAROXABAN
     Indication: DEEP VEIN THROMBOSIS
     Route: 048
     Dates: start: 20141009, end: 201411
  9. GABAPENTIN. [Concomitant]
     Active Substance: GABAPENTIN
     Route: 065
  10. FLONASE [Concomitant]
     Active Substance: FLUTICASONE PROPIONATE
     Route: 045
  11. CHOLECALCIFEROL [Concomitant]
     Active Substance: CHOLECALCIFEROL
     Route: 065
  12. XARELTO [Suspect]
     Active Substance: RIVAROXABAN
     Indication: DEEP VEIN THROMBOSIS
     Route: 048
     Dates: start: 20131227, end: 20140327
  13. CYMBALTA [Concomitant]
     Active Substance: DULOXETINE HYDROCHLORIDE
     Route: 065
  14. LANTUS SOLOSTAR [Concomitant]
     Active Substance: INSULIN GLARGINE
     Route: 065
  15. LIDODERM [Concomitant]
     Active Substance: LIDOCAINE
     Route: 065
  16. XARELTO [Suspect]
     Active Substance: RIVAROXABAN
     Indication: DEEP VEIN THROMBOSIS
     Route: 048
     Dates: start: 20140718, end: 201408
  17. ASPIRIN. [Suspect]
     Active Substance: ASPIRIN
     Indication: PRODUCT USED FOR UNKNOWN INDICATION
     Route: 065
  18. METOPROLOL. [Concomitant]
     Active Substance: METOPROLOL
     Route: 065
  19. LISINOPRIL. [Concomitant]
     Active Substance: LISINOPRIL
     Route: 048
  20. XARELTO [Suspect]
     Active Substance: RIVAROXABAN
     Indication: DEEP VEIN THROMBOSIS
     Route: 048
     Dates: start: 20140821, end: 20140916
  21. AMIODARONE HCL [Concomitant]
     Active Substance: AMIODARONE HYDROCHLORIDE
     Route: 065
  22. CARVEDILOL. [Concomitant]
     Active Substance: CARVEDILOL
     Route: 065

REACTIONS (5)
  - Gastrointestinal haemorrhage [Unknown]
  - Respiratory failure [Not Recovered/Not Resolved]
  - Renal haemorrhage [Recovering/Resolving]
  - Internal haemorrhage [Unknown]
  - Haematuria [Recovered/Resolved]

NARRATIVE: CASE EVENT DATE: 20140916
